FAERS Safety Report 6299474-3 (Version None)
Quarter: 2009Q3

REPORT INFORMATION
  Report Type: 
  Country: None (occurrence: None)
  Receive Date: 20090806
  Receipt Date: 20090730
  Transmission Date: 20100115
  Serious: Yes (Hospitalization, Other)
  Sender: FDA-Public Use
  Company Number: B0579101A

PATIENT
  Age: 77 Year
  Sex: Female
  Weight: 50 kg

DRUGS (7)
  1. ARIXTRA [Suspect]
     Indication: THROMBOSIS PROPHYLAXIS
     Dosage: 2.5MG PER DAY
     Route: 058
     Dates: start: 20090520, end: 20090605
  2. FLECAINIDE ACETATE [Concomitant]
     Dosage: 100MG PER DAY
     Route: 048
     Dates: start: 20090520
  3. ALDALIX [Concomitant]
     Dosage: 1CAP PER DAY
     Route: 048
     Dates: start: 20090520
  4. LIPANTHYL [Concomitant]
     Route: 048
     Dates: start: 20090520
  5. ACTONEL [Concomitant]
     Indication: OSTEOPOROSIS
     Dosage: 35MG WEEKLY
     Route: 048
     Dates: start: 20090520
  6. CACIT D3 [Concomitant]
     Indication: OSTEOPOROSIS
     Route: 048
     Dates: start: 20090520
  7. TANAKAN [Concomitant]
     Dosage: 40MG TWICE PER DAY
     Route: 048
     Dates: start: 20090520

REACTIONS (2)
  - HAEMATOMA [None]
  - NECROSIS [None]
